FAERS Safety Report 4419680-X (Version None)
Quarter: 2004Q3

REPORT INFORMATION
  Report Type: 
  Country: None (occurrence: None)
  Receive Date: 20040804
  Receipt Date: 20040713
  Transmission Date: 20050211
  Serious: No
  Sender: FDA-Public Use
  Company Number: US_0407104340

PATIENT
  Sex: Male

DRUGS (1)
  1. ZYPREXA [Suspect]
     Dates: start: 20020401, end: 20040401

REACTIONS (8)
  - ABDOMINAL DISTENSION [None]
  - ALOPECIA [None]
  - CARDIAC DISORDER [None]
  - EPISTAXIS [None]
  - GYNAECOMASTIA [None]
  - SKIN ULCER [None]
  - SOMNOLENCE [None]
  - WEIGHT INCREASED [None]
